FAERS Safety Report 6653905-5 (Version None)
Quarter: 2010Q1

REPORT INFORMATION
  Report Type: 
  Country: None (occurrence: None)
  Receive Date: 20100326
  Receipt Date: 20100326
  Transmission Date: 20100710
  Serious: Yes (Death)
  Sender: FDA-Public Use
  Company Number: US-ROXANE LABORATORIES, INC.-2010-RO-00224RO

PATIENT
  Sex: Male
  Weight: 64 kg

DRUGS (2)
  1. METHADONE [Suspect]
     Indication: DRUG ABUSE
     Dates: start: 20091112, end: 20091112
  2. CLONAZEPAM [Suspect]
     Indication: DRUG ABUSE
     Dates: start: 20091112, end: 20091112

REACTIONS (1)
  - THERAPEUTIC AGENT TOXICITY [None]
